FAERS Safety Report 4850633-3 (Version None)
Quarter: 2005Q4

REPORT INFORMATION
  Report Type: 
  Country: None (occurrence: None)
  Receive Date: 20051208
  Receipt Date: 20051129
  Transmission Date: 20060501
  Serious: Yes (Life-Threatening, Hospitalization, Other)
  Sender: FDA-Public Use
  Company Number: A-CH2004-06952

PATIENT
  Age: 67 Year
  Sex: Female
  Weight: 62 kg

DRUGS (7)
  1. TRACLEER [Suspect]
     Indication: PULMONARY HYPERTENSION
     Dosage: SEE IMAGE
     Route: 048
     Dates: start: 20040409, end: 20040508
  2. TRACLEER [Suspect]
     Indication: PULMONARY HYPERTENSION
     Dosage: SEE IMAGE
     Route: 048
     Dates: start: 20040509
  3. WARFARIN SODIUM [Suspect]
     Indication: PULMONARY HYPERTENSION
     Dates: end: 20040612
  4. ATACAND [Concomitant]
  5. NOVONORM (REPAGLINIDE) [Concomitant]
  6. BISOPROLOL (BISOPROLOL) [Concomitant]
  7. PANTOPRAZOLE SODIUM [Concomitant]

REACTIONS (5)
  - CARDIAC TAMPONADE [None]
  - OFF LABEL USE [None]
  - PERICARDIAL EFFUSION [None]
  - PERICARDIAL HAEMORRHAGE [None]
  - TRANSITIONAL CELL CARCINOMA [None]
